FAERS Safety Report 8505856-9 (Version None)
Quarter: 2012Q3

REPORT INFORMATION
  Report Type: 
  Country: None (occurrence: None)
  Receive Date: 20120703
  Receipt Date: 20120626
  Transmission Date: 20120928
  Serious: Yes (Other)
  Sender: FDA-Public Use
  Company Number: 2012SP028772

PATIENT
  Age: 17 Year
  Sex: Female

DRUGS (1)
  1. NEXPLANON [Suspect]
     Indication: PRODUCT USED FOR UNKNOWN INDICATION
     Dates: start: 20111109

REACTIONS (7)
  - SKIN DISCOLOURATION [None]
  - DEVICE EXPULSION [None]
  - IMPLANT SITE SWELLING [None]
  - IMPLANT SITE CYST [None]
  - ECZEMA [None]
  - IMPLANT SITE REACTION [None]
  - WOUND [None]
